FAERS Safety Report 10717030 (Version 1)
Quarter: 2015Q1

REPORT INFORMATION
  Report Type: Not Available
  Country: US (occurrence: US)
  Receive Date: 20150116
  Receipt Date: 20150116
  Transmission Date: 20150721
  Serious: Yes (Hospitalization)
  Sender: FDA-Public Use
  Company Number: US-VIVUS-2013V1000534

PATIENT
  Age: 36 Year
  Sex: Female
  Weight: 85.35 kg

DRUGS (4)
  1. QSYMIA [Suspect]
     Active Substance: PHENTERMINE HYDROCHLORIDE\TOPIRAMATE
     Indication: WEIGHT DECREASED
     Route: 048
     Dates: start: 201306, end: 20130708
  2. QSYMIA [Suspect]
     Active Substance: PHENTERMINE HYDROCHLORIDE\TOPIRAMATE
     Indication: WEIGHT DECREASED
     Route: 048
     Dates: start: 20130525, end: 201306
  3. DEPO-PROVERA [Concomitant]
     Active Substance: MEDROXYPROGESTERONE ACETATE
     Indication: CONTRACEPTION
     Dates: start: 2012
  4. PRAVACHOL [Concomitant]
     Active Substance: PRAVASTATIN SODIUM
     Indication: BLOOD CHOLESTEROL INCREASED
     Route: 048
     Dates: start: 2008

REACTIONS (6)
  - Anxiety [Unknown]
  - Agitation [Unknown]
  - Depression [Unknown]
  - Insomnia [Unknown]
  - Suicide attempt [Recovered/Resolved]
  - Irritability [Unknown]

NARRATIVE: CASE EVENT DATE: 20130525
